FAERS Safety Report 4489276-2 (Version None)
Quarter: 2004Q4

REPORT INFORMATION
  Report Type: 
  Country: None (occurrence: None)
  Receive Date: 20041029
  Receipt Date: 20041020
  Transmission Date: 20050328
  Serious: Yes (Hospitalization)
  Sender: FDA-Public Use
  Company Number: FR-AMGEN-UK096343

PATIENT
  Age: 57 Year
  Sex: Female

DRUGS (14)
  1. NEUPOGEN [Suspect]
     Indication: CHEMOTHERAPY
     Route: 058
     Dates: start: 20040705, end: 20040705
  2. HEPARIN [Suspect]
     Route: 042
     Dates: start: 20040625, end: 20040710
  3. FUNGIZONE [Concomitant]
  4. ZOVIRAX [Concomitant]
     Route: 042
  5. TRIFLUCAN [Concomitant]
     Route: 048
  6. GELOX [Concomitant]
     Dates: start: 20040625, end: 20040710
  7. FORTUM [Concomitant]
     Route: 048
     Dates: start: 20040703, end: 20040710
  8. AMIKACIN [Concomitant]
     Route: 065
  9. ZOPHREN [Concomitant]
     Route: 065
     Dates: start: 20040627, end: 20040708
  10. ALKERAN [Concomitant]
     Route: 065
     Dates: start: 20040625
  11. LARGACTIL [Concomitant]
     Route: 065
     Dates: start: 20040706, end: 20040710
  12. VINCRISTINE [Concomitant]
  13. DOXORUBICIN HCL [Concomitant]
  14. DEXAMETHASONE [Concomitant]

REACTIONS (5)
  - ANAEMIA [None]
  - BLOOD PRESSURE DECREASED [None]
  - FALL [None]
  - PERITONEAL HAEMORRHAGE [None]
  - SPLENIC HAEMATOMA [None]
